FAERS Safety Report 23947294 (Version 1)
Quarter: 2024Q2

REPORT INFORMATION
  Report Type: Spontaneous
  Country: IE (occurrence: IE)
  Receive Date: 20240606
  Receipt Date: 20240606
  Transmission Date: 20240715
  Serious: Yes (Other)
  Sender: FDA-Public Use
  Company Number: IE-BAXTER-2024BAX017486

PATIENT
  Age: 36 Year
  Sex: Female

DRUGS (8)
  1. DEXAMETHASONE [Suspect]
     Active Substance: DEXAMETHASONE
     Indication: Antiemetic supportive care
     Dosage: 20 MG
     Route: 042
     Dates: start: 20240206, end: 20240206
  2. SODIUM CHLORIDE [Suspect]
     Active Substance: SODIUM CHLORIDE
     Indication: Medication dilution
     Dosage: 0.9% INTRAVENOUS INFUSION BP, 1000 ML (MILLILITER) 0.9% PER 90 MG AT AN UNSPECIFIED FREQUENCY
     Route: 042
     Dates: start: 20240206, end: 20240206
  3. SODIUM CHLORIDE [Suspect]
     Active Substance: SODIUM CHLORIDE
     Indication: Fluid replacement
     Dosage: 1 LITER
     Route: 040
     Dates: start: 20240206, end: 20240206
  4. SODIUM CHLORIDE [Suspect]
     Active Substance: SODIUM CHLORIDE
     Dosage: 1 LITER OF SODIUM CHLORIDE DILUTED IN 10 MMOL OF MAGNESIUM SULFATE
     Route: 040
     Dates: start: 20240206, end: 20240206
  5. APREPITANT [Suspect]
     Active Substance: APREPITANT
     Indication: Antiemetic supportive care
     Dosage: 125 MILLIGRAM
     Route: 048
     Dates: start: 20240206, end: 20240206
  6. CISPLATIN [Suspect]
     Active Substance: CISPLATIN
     Indication: Squamous cell carcinoma of the cervix
     Dosage: 90 MG (MILLIGRAM) IN 1000 ML (MILLILITER) 0.9% OF SODIUM CHLORIDE
     Route: 040
     Dates: start: 20240206, end: 20240206
  7. MAGNESIUM SULFATE [Suspect]
     Active Substance: MAGNESIUM SULFATE\MAGNESIUM SULFATE HEPTAHYDRATE
     Indication: Fluid replacement
     Dosage: 10 MMOL OF MAGNESIUM SULPHATE DILUTED IN 1 L SODIUM CHLORIDE
     Route: 042
     Dates: start: 20240206, end: 20240206
  8. GRANISETRON [Suspect]
     Active Substance: GRANISETRON
     Indication: Antiemetic supportive care
     Dosage: 2 MG/1 MG (VIA PO/IV ROUTE)
     Route: 065
     Dates: start: 20240206, end: 20240206

REACTIONS (4)
  - Paraesthesia [Unknown]
  - Formication [Unknown]
  - Feeling cold [Unknown]
  - Hypersensitivity [Recovered/Resolved]

NARRATIVE: CASE EVENT DATE: 20240206
